FAERS Safety Report 10463354 (Version 1)
Quarter: 2014Q3

REPORT INFORMATION
  Report Type: Spontaneous
  Country: FR (occurrence: FR)
  Receive Date: 20140919
  Receipt Date: 20140919
  Transmission Date: 20150326
  Serious: Yes (Other)
  Sender: FDA-Public Use
  Company Number: FR-009507513-1409FRA008419

PATIENT
  Age: 60 Year
  Sex: Male

DRUGS (5)
  1. CALCIPARINE [Suspect]
     Active Substance: HEPARIN CALCIUM
     Indication: THROMBOSIS PROPHYLAXIS
     Dosage: 0.2(UNIT UNKNOWN), BID; STRENGTH:5000UI/ 0.2ML
     Route: 058
     Dates: start: 20140720, end: 20140801
  2. AMLOR [Concomitant]
     Active Substance: AMLODIPINE BESYLATE
     Dosage: 1 DF, QD
     Route: 048
     Dates: start: 20140703
  3. LOXEN [Concomitant]
     Active Substance: NICARDIPINE HYDROCHLORIDE
     Dosage: 1 DF, BID
  4. ORGARAN [Suspect]
     Active Substance: DANAPAROID SODIUM
     Indication: THROMBOSIS PROPHYLAXIS
     Dosage: STRENGTH 750UI AXA/0.5ML
     Route: 058
     Dates: start: 20140801, end: 20140805
  5. ZOLOFT [Concomitant]
     Active Substance: SERTRALINE HYDROCHLORIDE
     Dosage: 1 DF, BID
     Route: 048

REACTIONS (1)
  - Thrombocytopenia [Recovered/Resolved]

NARRATIVE: CASE EVENT DATE: 20140801
